FAERS Safety Report 13793018 (Version 1)
Quarter: 2017Q3

REPORT INFORMATION
  Report Type: Spontaneous
  Country: US (occurrence: US)
  Receive Date: 20170726
  Receipt Date: 20170726
  Transmission Date: 20171127
  Serious: No
  Sender: FDA-Public Use
  Company Number: None

PATIENT
  Age: 58 Year
  Sex: Female
  Weight: 72.58 kg

DRUGS (7)
  1. CORTISONE CREAM [Concomitant]
  2. SERTRALINE [Concomitant]
     Active Substance: SERTRALINE HYDROCHLORIDE
  3. INVEGA [Suspect]
     Active Substance: PALIPERIDONE
     Indication: SCHIZOPHRENIA
     Dosage: ROUTE - INJECTION ON THE SKIN
     Dates: start: 20141123
  4. ZOLPIDEM [Concomitant]
     Active Substance: ZOLPIDEM\ZOLPIDEM TARTRATE
  5. INVEGA [Suspect]
     Active Substance: PALIPERIDONE
     Indication: SUICIDAL IDEATION
     Dosage: ROUTE - INJECTION ON THE SKIN
     Dates: start: 20141123
  6. ITCHING CREAM SOAP PRODUCT [Concomitant]
  7. ALOE VERA ITCHING DOLLAR TREE CREAM [Concomitant]

REACTIONS (2)
  - Bite [None]
  - Injection site mass [None]

NARRATIVE: CASE EVENT DATE: 20170109
